FAERS Safety Report 13383612 (Version 1)
Quarter: 2017Q1

REPORT INFORMATION
  Report Type: Spontaneous
  Country: US (occurrence: US)
  Receive Date: 20170329
  Receipt Date: 20170329
  Transmission Date: 20170429
  Serious: Yes (Life-Threatening, Other)
  Sender: FDA-Public Use
  Company Number: US-PFIZER INC-2017133038

PATIENT
  Age: 75 Year
  Sex: Female

DRUGS (1)
  1. CEFAZOLIN [Suspect]
     Active Substance: CEFAZOLIN
     Indication: PROPHYLAXIS
     Dosage: 1 G, 4X/DAY (EVERY 6 HRS)
     Route: 042

REACTIONS (2)
  - Pseudomembranous colitis [Recovering/Resolving]
  - Large intestine perforation [Recovering/Resolving]
